FAERS Safety Report 16790758 (Version 10)
Quarter: 2022Q2

REPORT INFORMATION
  Report Type: Spontaneous
  Country: US (occurrence: US)
  Receive Date: 20190910
  Receipt Date: 20220420
  Transmission Date: 20220721
  Serious: No
  Sender: FDA-Public Use
  Company Number: US-PFIZER INC-2019390874

PATIENT
  Age: 63 Year
  Sex: Female
  Weight: 86 kg

DRUGS (8)
  1. LYRICA [Suspect]
     Active Substance: PREGABALIN
     Indication: Neuropathy peripheral
     Dosage: 150 MG, 3X/DAY [ONE PO (PER ORAL) TID (THREE TIMES A DAY) X 90 DAYS]
     Route: 048
  2. LYRICA [Suspect]
     Active Substance: PREGABALIN
     Indication: Fibromyalgia
     Dosage: 150 MG, 2X/DAY
     Route: 048
  3. LYRICA [Suspect]
     Active Substance: PREGABALIN
     Dosage: 150 MG, 3X/DAY (TAKE 1 CAPSULE (150 MG) BY ORAL ROUTE 3 TIMES PER DAY FOR 90 DAYS)
     Dates: start: 20220321
  4. TRAMADOL [Concomitant]
     Active Substance: TRAMADOL
     Indication: Pain
     Dosage: UNK
  5. AZITHROMYCIN [Concomitant]
     Active Substance: AZITHROMYCIN
     Dosage: 500 MG, 1X/DAY(TAKE 1 TABLET (500 MG) BY ORAL ROUTE ONCE DAILY FOR 5 DAYS)
     Route: 048
     Dates: start: 20211201
  6. DIFLUCAN [Concomitant]
     Active Substance: FLUCONAZOLE
     Dosage: 100 MG, 1X/DAY(TAKE 1 TABLET (100 MG) BY ORAL ROUTE FOR 30 DAYS)
     Route: 048
     Dates: start: 20220228
  7. FLUCONAZOLE [Concomitant]
     Active Substance: FLUCONAZOLE
     Dosage: 100 MG, 1X/DAY(TAKE 1 TABLET (100 MG) BY ORAL ROUTE ONCE DAILY FOR 5 DAYS)
     Route: 048
     Dates: start: 20210907
  8. GABAPENTIN [Concomitant]
     Active Substance: GABAPENTIN
     Dosage: 600 MG, 3X/DAY(TAKE 1 TABLET (600 MG) BY ORAL ROUTE 3 TIMES PER DAY FOR 90 DAYS)
     Route: 048
     Dates: start: 20211230

REACTIONS (1)
  - Therapeutic product effect incomplete [Unknown]
